FAERS Safety Report 6079884-X (Version None)
Quarter: 2009Q1

REPORT INFORMATION
  Report Type: 
  Country: None (occurrence: None)
  Receive Date: 20090217
  Receipt Date: 20090204
  Transmission Date: 20090719
  Serious: Yes (Hospitalization)
  Sender: FDA-Public Use
  Company Number: US-ROCHE-612083

PATIENT
  Sex: Male
  Weight: 82 kg

DRUGS (5)
  1. PEG-INTERFERON ALFA 2A (RO 25-8310) [Suspect]
     Indication: HEPATITIS C
     Dosage: THERAPY TEMPORARILY INTERRUPTED.
     Route: 058
     Dates: start: 20081010, end: 20090123
  2. RIBAVIRIN [Suspect]
     Indication: HEPATITIS C
     Dosage: THERAPY TEMPORARILY INTERRUPTED.
     Route: 048
     Dates: start: 20081010, end: 20090125
  3. PROZAC [Concomitant]
  4. ELAVIL [Concomitant]
  5. NEURONTIN [Concomitant]
     Dosage: DRUG REPORTED AS ^NEUROTIN^

REACTIONS (1)
  - HEAD INJURY [None]
